FAERS Safety Report 18674792 (Version 6)
Quarter: 2021Q1

REPORT INFORMATION
  Report Type: Spontaneous
  Country: PL (occurrence: PL)
  Receive Date: 20201228
  Receipt Date: 20210209
  Transmission Date: 20210419
  Serious: Yes (Hospitalization, Other)
  Sender: FDA-Public Use
  Company Number: PL-AUROBINDO-AUR-APL-2020-063198

PATIENT
  Age: 42 Year
  Sex: Male

DRUGS (41)
  1. FENTANYL. [Suspect]
     Active Substance: FENTANYL
     Indication: PAIN
  2. KETOPROFEN. [Suspect]
     Active Substance: KETOPROFEN
     Indication: ARTHRALGIA
  3. METAMIZOLE [Suspect]
     Active Substance: METAMIZOLE
     Indication: MASTOCYTOSIS
  4. PREGABALIN. [Suspect]
     Active Substance: PREGABALIN
     Indication: PAIN
     Dosage: 150 MILLIGRAM, TWO TIMES A DAY
     Route: 065
  5. TRAMADOL. [Suspect]
     Active Substance: TRAMADOL
     Indication: ARTHRALGIA
  6. IBUPROFEN. [Suspect]
     Active Substance: IBUPROFEN
     Indication: ARTHRALGIA
  7. IBUPROFEN. [Suspect]
     Active Substance: IBUPROFEN
     Indication: MASTOCYTOSIS
  8. KETOPROFEN. [Suspect]
     Active Substance: KETOPROFEN
     Indication: PAIN
  9. MORPHINE [Suspect]
     Active Substance: MORPHINE
     Indication: ANALGESIC THERAPY
  10. MORPHINE [Suspect]
     Active Substance: MORPHINE
     Indication: MASTOCYTOSIS
  11. OXYCODONE [Suspect]
     Active Substance: OXYCODONE
     Indication: ARTHRALGIA
     Dosage: 80 MILLIGRAM, FOUR TIMES/DAY (320 MG ONCE A DAY)
     Route: 048
  12. PARACETAMOL [Suspect]
     Active Substance: ACETAMINOPHEN
     Indication: BONE PAIN
  13. TRAMADOL. [Suspect]
     Active Substance: TRAMADOL
     Indication: MASTOCYTOSIS
  14. PARACETAMOL [Suspect]
     Active Substance: ACETAMINOPHEN
     Indication: PAIN
     Dosage: UNK
     Route: 065
  15. PARACETAMOL [Suspect]
     Active Substance: ACETAMINOPHEN
     Indication: ANALGESIC THERAPY
  16. PARACETAMOL [Suspect]
     Active Substance: ACETAMINOPHEN
     Indication: ARTHRALGIA
  17. FENTANYL. [Suspect]
     Active Substance: FENTANYL
     Indication: MASTOCYTOSIS
     Dosage: UNK
     Route: 045
  18. IBUPROFEN. [Suspect]
     Active Substance: IBUPROFEN
     Indication: ANALGESIC THERAPY
     Dosage: UNK
     Route: 065
  19. IBUPROFEN. [Suspect]
     Active Substance: IBUPROFEN
     Indication: PAIN
  20. IBUPROFEN. [Suspect]
     Active Substance: IBUPROFEN
     Indication: BONE PAIN
  21. KETOPROFEN. [Suspect]
     Active Substance: KETOPROFEN
     Indication: ANALGESIC THERAPY
     Dosage: UNK
     Route: 065
  22. KETOPROFEN. [Suspect]
     Active Substance: KETOPROFEN
     Indication: MASTOCYTOSIS
  23. METAMIZOLE [Suspect]
     Active Substance: METAMIZOLE
     Indication: ANALGESIC THERAPY
  24. OXYCODONE [Suspect]
     Active Substance: OXYCODONE
     Indication: PAIN
     Dosage: 80 MILLIGRAM, 3 TIMES A DAY, CONTROLLED?RELEASE TABLETS
     Route: 048
  25. FENTANYL. [Suspect]
     Active Substance: FENTANYL
     Indication: ARTHRALGIA
  26. MORPHINE [Suspect]
     Active Substance: MORPHINE
     Indication: PAIN
     Dosage: UNK
     Route: 065
  27. MORPHINE [Suspect]
     Active Substance: MORPHINE
     Indication: ARTHRALGIA
  28. FENTANYL. [Suspect]
     Active Substance: FENTANYL
     Indication: SYSTEMIC MASTOCYTOSIS
     Dosage: 200 MICROGRAM, AS NECESSARY
     Route: 002
  29. GABAPENTIN. [Suspect]
     Active Substance: GABAPENTIN
     Indication: PAIN
     Dosage: 300 MILLIGRAM, 3 TIMES A DAY
     Route: 065
  30. GABAPENTIN. [Suspect]
     Active Substance: GABAPENTIN
     Indication: ARTHRALGIA
     Dosage: 300 MILLIGRAM, FOUR TIMES/DAY (1200 MG ONCE A DAY)
     Route: 065
  31. TRAMADOL. [Suspect]
     Active Substance: TRAMADOL
     Indication: ANALGESIC THERAPY
     Dosage: UNK
     Route: 065
  32. TRAMADOL. [Suspect]
     Active Substance: TRAMADOL
     Indication: PAIN
  33. FENTANYL. [Suspect]
     Active Substance: FENTANYL
     Indication: ARTHRALGIA
  34. KETOPROFEN. [Suspect]
     Active Substance: KETOPROFEN
     Indication: BONE PAIN
  35. METAMIZOLE [Suspect]
     Active Substance: METAMIZOLE
     Indication: PAIN
     Dosage: UNK
     Route: 065
  36. METAMIZOLE [Suspect]
     Active Substance: METAMIZOLE
     Indication: ARTHRALGIA
  37. METAMIZOLE [Suspect]
     Active Substance: METAMIZOLE
     Indication: BONE PAIN
  38. MORPHINE [Suspect]
     Active Substance: MORPHINE
     Indication: BONE PAIN
  39. OXYCODONE [Suspect]
     Active Substance: OXYCODONE
     Dosage: 100 MILLIGRAM, FOUR TIMES/DAY
     Route: 065
  40. TRAMADOL. [Suspect]
     Active Substance: TRAMADOL
     Indication: BONE PAIN
  41. CLADRIBINE. [Concomitant]
     Active Substance: CLADRIBINE
     Indication: SYSTEMIC MASTOCYTOSIS
     Dosage: UNK
     Route: 065

REACTIONS (12)
  - Gingival pain [Not Recovered/Not Resolved]
  - Constipation [Unknown]
  - Drug dependence [Recovered/Resolved]
  - Anaphylactic shock [Recovered/Resolved]
  - Teething [Not Recovered/Not Resolved]
  - Drug intolerance [Unknown]
  - Anaphylactic reaction [Not Recovered/Not Resolved]
  - Rhinitis allergic [Recovered/Resolved]
  - Drug ineffective [Unknown]
  - Hypersensitivity [Recovered/Resolved]
  - Toothache [Unknown]
  - Therapeutic product effect incomplete [Unknown]
